FAERS Safety Report 17356375 (Version 2)
Quarter: 2020Q1

REPORT INFORMATION
  Report Type: Spontaneous
  Country: CA (occurrence: CA)
  Receive Date: 20200131
  Receipt Date: 20200327
  Transmission Date: 20200409
  Serious: Yes (Hospitalization)
  Sender: FDA-Public Use
  Company Number: CA-PFIZER INC-2018330267

PATIENT
  Age: 56 Year
  Sex: Female

DRUGS (11)
  1. PMS-HYDROCHLOROTHIAZID [Concomitant]
     Dosage: 25 MG, DAILY
     Route: 048
     Dates: start: 20170811
  2. DIAMICRON [Concomitant]
     Active Substance: GLICLAZIDE
     Dosage: 120 MG, ONCE DAILY (IN AM)
     Dates: start: 20170811
  3. SOMAVERT [Suspect]
     Active Substance: PEGVISOMANT
     Dosage: 15 MG, ONCE DAILY
     Route: 058
     Dates: start: 201806, end: 2018
  4. SOMAVERT [Suspect]
     Active Substance: PEGVISOMANT
     Dosage: 30 MG, ONCE DAILY
     Route: 058
     Dates: start: 201902
  5. CABERGOLINE. [Concomitant]
     Active Substance: CABERGOLINE
     Dosage: 0.5 UNK, TWICE WEEKLY
  6. SOMATULINE [LANREOTIDE] [Concomitant]
     Active Substance: LANREOTIDE
     Dosage: 120 MG, CYCLIC (EVERY 28 DAYS)
  7. JARDIANCE [Concomitant]
     Active Substance: EMPAGLIFLOZIN
     Dosage: 25 MG, DAILY
     Route: 048
     Dates: start: 20170811
  8. SOMAVERT [Suspect]
     Active Substance: PEGVISOMANT
     Dosage: 20 MG, ONCE DAILY
     Route: 058
     Dates: start: 201811, end: 2019
  9. SOMAVERT [Suspect]
     Active Substance: PEGVISOMANT
     Indication: ACROMEGALY
     Dosage: 10 MG, ONCE DAILY
     Route: 058
     Dates: start: 20180506, end: 2018
  10. COVERSYL [PERINDOPRIL ERBUMINE] [Concomitant]
     Active Substance: PERINDOPRIL ERBUMINE
     Dosage: 8 MG, DAILY
     Route: 048
     Dates: start: 20170811
  11. JENTADUETO [Concomitant]
     Active Substance: LINAGLIPTIN\METFORMIN HYDROCHLORIDE
     Dosage: 1 DF, TWICE DAILY
     Route: 048
     Dates: start: 20170811

REACTIONS (1)
  - Cholelithiasis [Unknown]
